FAERS Safety Report 8279482-3 (Version None)
Quarter: 2012Q2

REPORT INFORMATION
  Report Type: 
  Country: None (occurrence: None)
  Receive Date: 20120412
  Receipt Date: 20110922
  Transmission Date: 20120825
  Serious: No
  Sender: FDA-Public Use
  Company Number: US-ASTRAZENECA-2011SE40315

PATIENT
  Age: 80 Year
  Sex: Female
  Weight: 67.1 kg

DRUGS (6)
  1. EFFEXOR [Concomitant]
  2. NEXIUM [Suspect]
     Route: 048
  3. PROBIOTIC [Concomitant]
     Indication: GASTRIC DISORDER
  4. LEVOTHYROXINE SODIUM [Concomitant]
     Indication: THYROID DISORDER
  5. VITAMIN [Concomitant]
  6. FEXOFENADINE [Concomitant]
     Indication: MULTIPLE ALLERGIES

REACTIONS (10)
  - CONDITION AGGRAVATED [None]
  - ABDOMINAL DISCOMFORT [None]
  - ABDOMINAL PAIN UPPER [None]
  - POLYP [None]
  - FLATULENCE [None]
  - DRUG DOSE OMISSION [None]
  - GASTRITIS [None]
  - MUSCLE SPASMS [None]
  - ERUCTATION [None]
  - DYSPEPSIA [None]
